FAERS Safety Report 10150780 (Version 1)
Quarter: 2014Q2

REPORT INFORMATION
  Report Type: Spontaneous
  Country: FR (occurrence: FR)
  Receive Date: 20140502
  Receipt Date: 20140502
  Transmission Date: 20141212
  Serious: Yes (Life-Threatening, Hospitalization)
  Sender: FDA-Public Use
  Company Number: FR-PFIZER INC-2014118481

PATIENT
  Age: 48 Year
  Sex: Male

DRUGS (1)
  1. VIAGRA [Suspect]
     Dosage: 2 DF, SINGLE
     Route: 048
     Dates: start: 201404, end: 201404

REACTIONS (1)
  - Methaemoglobinaemia [Recovered/Resolved]
